FAERS Safety Report 10057415 (Version 1)
Quarter: 2014Q2

REPORT INFORMATION
  Report Type: Spontaneous
  Country: US (occurrence: US)
  Receive Date: 20140403
  Receipt Date: 20140403
  Transmission Date: 20141212
  Serious: Yes (Other)
  Sender: FDA-Public Use
  Company Number: US-RB-065410-14

PATIENT
  Age: 0 None
  Sex: Female

DRUGS (2)
  1. BUPRENORPHINE GENERIC [Suspect]
     Indication: DRUG DEPENDENCE
     Dosage: FROM 16 MG DAILY, MOTHER WAS MEDICALLY TAPERED DOWN TO 2 MG DAILY
     Route: 064
     Dates: start: 201203, end: 20121121
  2. NICOTINE [Suspect]
     Indication: NICOTINE DEPENDENCE
     Dosage: MOTHER WAS USING 1/2 PACK DAILY
     Route: 064
     Dates: start: 201203, end: 20121121

REACTIONS (3)
  - Foetal exposure during pregnancy [Recovered/Resolved]
  - Premature baby [Recovered/Resolved]
  - Low birth weight baby [Recovered/Resolved]
